FAERS Safety Report 18511147 (Version 2)
Quarter: 2020Q4

REPORT INFORMATION
  Report Type: Spontaneous
  Country: JP (occurrence: JP)
  Receive Date: 20201117
  Receipt Date: 20201127
  Transmission Date: 20210114
  Serious: Yes (Other)
  Sender: FDA-Public Use
  Company Number: JP-STRIDES ARCOLAB LIMITED-2020SP013540

PATIENT
  Age: 72 Year
  Sex: Male

DRUGS (8)
  1. PREDNISOLONE. [Suspect]
     Active Substance: PREDNISOLONE
     Dosage: 20 MILLIGRAM, PER DAY
     Route: 065
  2. PREDNISOLONE. [Suspect]
     Active Substance: PREDNISOLONE
     Dosage: 10 MILLIGRAM, PER DAY
     Route: 065
  3. PREDNISOLONE. [Suspect]
     Active Substance: PREDNISOLONE
     Indication: IDIOPATHIC PULMONARY FIBROSIS
     Dosage: 30 MILLIGRAM, PER DAY
     Route: 065
  4. CYCLOSPORINE. [Suspect]
     Active Substance: CYCLOSPORINE
     Indication: IDIOPATHIC PULMONARY FIBROSIS
     Dosage: 150 MILLIGRAM, PER DAY
     Route: 065
  5. CYCLOSPORINE. [Suspect]
     Active Substance: CYCLOSPORINE
     Dosage: 50 MILLIGRAM, PER DAY
     Route: 065
  6. CYCLOSPORINE. [Suspect]
     Active Substance: CYCLOSPORINE
     Dosage: 200 MILLIGRAM, PER DAY
     Route: 065
  7. CYCLOSPORINE. [Suspect]
     Active Substance: CYCLOSPORINE
     Dosage: 100 MILLIGRAM, PER DAY
     Route: 065
  8. CYCLOSPORINE. [Suspect]
     Active Substance: CYCLOSPORINE
     Dosage: 150 MILLIGRAM, PER DAY
     Route: 065

REACTIONS (3)
  - Squamous cell carcinoma of lung [Recovered/Resolved]
  - Off label use [Unknown]
  - Diabetes mellitus [Unknown]
